FAERS Safety Report 9124027 (Version 1)
Quarter: 2013Q1

REPORT INFORMATION
  Report Type: Spontaneous
  Country: AU (occurrence: AU)
  Receive Date: 20130227
  Receipt Date: 20130227
  Transmission Date: 20140127
  Serious: Yes (Hospitalization, Disabling, Other)
  Sender: FDA-Public Use
  Company Number: AU-PFIZER INC-2013068212

PATIENT
  Sex: Male

DRUGS (1)
  1. LIPITOR [Suspect]
     Indication: BLOOD CHOLESTEROL
     Dosage: UNK
     Dates: start: 200602

REACTIONS (6)
  - Myocardial infarction [Unknown]
  - Suicidal ideation [Unknown]
  - Cerebrovascular accident [Unknown]
  - Brain injury [Unknown]
  - Major depression [Unknown]
  - Movement disorder [Unknown]
